FAERS Safety Report 17084557 (Version 1)
Quarter: 2019Q4

REPORT INFORMATION
  Report Type: Other
  Country: GB (occurrence: GB)
  Receive Date: 20191127
  Receipt Date: 20191127
  Transmission Date: 20200122
  Serious: Yes (Hospitalization)
  Sender: FDA-Public Use
  Company Number: GB-CELLTRION INC.-2018GB023111

PATIENT

DRUGS (11)
  1. LANSOPRAZOLE. [Concomitant]
     Active Substance: LANSOPRAZOLE
  2. FERROUS SULFATE. [Concomitant]
     Active Substance: FERROUS SULFATE
  3. FOLIC ACID. [Concomitant]
     Active Substance: FOLIC ACID
  4. TRUXIMA [Suspect]
     Active Substance: RITUXIMAB-ABBS
     Indication: THROMBOTIC THROMBOCYTOPENIC PURPURA
     Dosage: 600 MG
     Route: 042
     Dates: start: 20180812, end: 20180812
  5. TRUXIMA [Suspect]
     Active Substance: RITUXIMAB-ABBS
     Dosage: 600 MG
     Route: 042
     Dates: start: 20180812, end: 20180812
  6. PARACETAMOL [Concomitant]
     Active Substance: ACETAMINOPHEN
  7. METHYLPREDNISOLONE. [Concomitant]
     Active Substance: METHYLPREDNISOLONE
  8. ACETYLSALICYLIC ACID [Concomitant]
     Active Substance: ASPIRIN
  9. CYCLIZINE [Concomitant]
     Active Substance: CYCLIZINE
  10. DALTEPARIN [Concomitant]
     Active Substance: DALTEPARIN
  11. CODEINE PHOSPHATE [Concomitant]
     Active Substance: CODEINE PHOSPHATE

REACTIONS (2)
  - Product use in unapproved indication [Unknown]
  - Drug-induced liver injury [Not Recovered/Not Resolved]

NARRATIVE: CASE EVENT DATE: 20180816
